FAERS Safety Report 7457530-8 (Version None)
Quarter: 2011Q2

REPORT INFORMATION
  Report Type: 
  Country: None (occurrence: None)
  Receive Date: 20110504
  Receipt Date: 20110426
  Transmission Date: 20111010
  Serious: Yes (Hospitalization)
  Sender: FDA-Public Use
  Company Number: US-BRISTOL-MYERS SQUIBB COMPANY-15166739

PATIENT
  Age: 56 Year
  Sex: Male
  Weight: 88 kg

DRUGS (4)
  1. CETUXIMAB [Suspect]
     Indication: NON-SMALL CELL LUNG CANCER
     Dosage: RECENT INF:01JUN10(6TH),39D,INT ON 7JUN10,RESTARTED ON 1JUL10
     Route: 042
     Dates: start: 20100423
  2. PEMETREXED DISODIUM [Suspect]
     Indication: NON-SMALL CELL LUNG CANCER
     Dosage: INTERRUPTED ON 24MAY10(2ND),31D,INT ON 7JUN10,RESTARTED ON 1JUL10
     Route: 042
     Dates: start: 20100423
  3. CISPLATIN [Suspect]
     Indication: NON-SMALL CELL LUNG CANCER
     Dosage: RECENT INF:24MAY10:2ND,31D,INT ON 7JUN10,RESTARTED ON 1JUL10
     Route: 042
     Dates: start: 20100423
  4. FOLIC ACID [Concomitant]
     Route: 065

REACTIONS (3)
  - PNEUMONIA [None]
  - PLEURAL EFFUSION [None]
  - LUNG INFILTRATION [None]
